FAERS Safety Report 17727877 (Version 5)
Quarter: 2020Q4

REPORT INFORMATION
  Report Type: Spontaneous
  Country: US (occurrence: US)
  Receive Date: 20200430
  Receipt Date: 20201211
  Transmission Date: 20210113
  Serious: Yes (Death, Other)
  Sender: FDA-Public Use
  Company Number: US-PFIZER INC-2020173636

PATIENT
  Age: 86 Year
  Sex: Male
  Weight: 69.85 kg

DRUGS (1)
  1. VYNDAMAX [Suspect]
     Active Substance: TAFAMIDIS
     Indication: AMYLOIDOSIS
     Dosage: 61 MG
     Dates: start: 20200218

REACTIONS (7)
  - Death [Fatal]
  - Cardiac failure [Unknown]
  - Hearing disability [Unknown]
  - Heart rate decreased [Unknown]
  - General physical health deterioration [Unknown]
  - Mobility decreased [Unknown]
  - Malaise [Unknown]

NARRATIVE: CASE EVENT DATE: 2020
